FAERS Safety Report 15660392 (Version 1)
Quarter: 2018Q4

REPORT INFORMATION
  Report Type: Spontaneous
  Country: US (occurrence: US)
  Receive Date: 20181127
  Receipt Date: 20181127
  Transmission Date: 20190205
  Serious: Yes (Hospitalization, Other)
  Sender: FDA-Public Use
  Company Number: US-REGENERON PHARMACEUTICALS, INC.-2018-45693

PATIENT

DRUGS (3)
  1. EYLEA [Suspect]
     Active Substance: AFLIBERCEPT
     Dosage: UNK, LEFT EYE (OS), LAST DOSE PRIOR TO EVENT
     Route: 031
     Dates: start: 20181024, end: 20181024
  2. EYLEA [Suspect]
     Active Substance: AFLIBERCEPT
     Dosage: UNK, RIGHT EYE (OD), LAST DOSE PRIOR TO EVENT
     Route: 031
     Dates: start: 20181024, end: 20181024
  3. EYLEA [Suspect]
     Active Substance: AFLIBERCEPT
     Indication: DIABETIC RETINAL OEDEMA
     Dosage: UNK, BOTH EYES (OU)
     Route: 031

REACTIONS (4)
  - Suicidal ideation [Unknown]
  - Endophthalmitis [Recovering/Resolving]
  - Product dose omission [Unknown]
  - Drug dependence [Unknown]

NARRATIVE: CASE EVENT DATE: 20181029
